FAERS Safety Report 5912020-6 (Version None)
Quarter: 2008Q4

REPORT INFORMATION
  Report Type: 
  Country: None (occurrence: None)
  Receive Date: 20081008
  Receipt Date: 20080930
  Transmission Date: 20090506
  Serious: Yes (Other)
  Sender: FDA-Public Use
  Company Number: ES-ASTRAZENECA-2008AC02639

PATIENT
  Age: 46 Year
  Sex: Male

DRUGS (2)
  1. BUPIVACAINE [Suspect]
     Indication: SPINAL ANAESTHESIA
     Route: 037
  2. BETADINE [Concomitant]
     Indication: INFECTION PROPHYLAXIS
     Route: 061

REACTIONS (1)
  - MENINGITIS [None]
